FAERS Safety Report 7428769-2 (Version None)
Quarter: 2011Q2

REPORT INFORMATION
  Report Type: 
  Country: None (occurrence: None)
  Receive Date: 20110421
  Receipt Date: 20110401
  Transmission Date: 20111010
  Serious: Yes (Other)
  Sender: FDA-Public Use
  Company Number: BR-BRISTOL-MYERS SQUIBB COMPANY-15680994

PATIENT
  Sex: Male

DRUGS (2)
  1. RUBRANOVA INJ [Suspect]
     Route: 030
  2. FERROUS SULFATE TAB [Suspect]
     Route: 030

REACTIONS (2)
  - HAEMOGLOBIN DECREASED [None]
  - SHOCK [None]
